FAERS Safety Report 5822335-8 (Version None)
Quarter: 2008Q3

REPORT INFORMATION
  Report Type: 
  Country: None (occurrence: None)
  Receive Date: 20080722
  Receipt Date: 20071225
  Transmission Date: 20090109
  Serious: Yes (Disabling)
  Sender: FDA-Public Use
  Company Number: 805#8#2007-00067

PATIENT
  Age: 35 Year
  Sex: Male

DRUGS (5)
  1. ALPROSTADIL [Suspect]
     Indication: SKIN OPERATION
     Dosage: 60 MCG INTRAVENOUS DRIP
     Route: 041
     Dates: start: 20050720, end: 20050721
  2. HEPARIN [Suspect]
     Indication: ANTICOAGULANT THERAPY
     Dosage: 10000 IU INTRAVENOUS DRIP
     Route: 041
     Dates: start: 20050720, end: 20050721
  3. UROKINASE (UROKINASE) [Suspect]
     Indication: ANTICOAGULANT THERAPY
     Dosage: 240000 IU INTRAVENOUS
     Route: 042
     Dates: start: 20050720, end: 20050721
  4. DEXTRAN 40 INJ [Suspect]
     Indication: ANTICOAGULANT THERAPY
     Dosage: 50 G INTRAVENOUS DRIP
     Route: 041
     Dates: start: 20050720, end: 20050721
  5. ARBEKACIN SULFATE (ARBEKACIN) [Concomitant]

REACTIONS (3)
  - SKIN NECROSIS [None]
  - SWELLING [None]
  - VESSEL PUNCTURE SITE HAEMATOMA [None]
